FAERS Safety Report 11995164 (Version 1)
Quarter: 2016Q1

REPORT INFORMATION
  Report Type: Spontaneous
  Country: US (occurrence: US)
  Receive Date: 20160203
  Receipt Date: 20160203
  Transmission Date: 20160526
  Serious: No
  Sender: FDA-Public Use
  Company Number: US-UCBSA-2015009580

PATIENT
  Sex: Female

DRUGS (1)
  1. KEPPRA XR [Suspect]
     Active Substance: LEVETIRACETAM
     Indication: SEIZURE
     Dosage: 500 MG/3 DAILY, ONCE DAILY (QD)
     Dates: start: 2011

REACTIONS (6)
  - Somnolence [Unknown]
  - Pregnancy [Unknown]
  - Incorrect dose administered [Unknown]
  - Fatigue [Unknown]
  - Seizure [Recovered/Resolved]
  - Unevaluable event [Recovered/Resolved]

NARRATIVE: CASE EVENT DATE: 2011
